FAERS Safety Report 12222788 (Version 1)
Quarter: 2016Q1

REPORT INFORMATION
  Report Type: Report from Study
  Country: JP (occurrence: JP)
  Receive Date: 20160330
  Receipt Date: 20160330
  Transmission Date: 20160526
  Serious: Yes (Death, Hospitalization, Other)
  Sender: FDA-Public Use
  Company Number: JP-EISAI MEDICAL RESEARCH-EC-2016-015597

PATIENT
  Age: 69 Year
  Sex: Female
  Weight: 46 kg

DRUGS (3)
  1. HALAVEN [Suspect]
     Active Substance: ERIBULIN MESYLATE
     Route: 041
     Dates: start: 20150729, end: 20150729
  2. ZOMETA [Concomitant]
     Active Substance: ZOLEDRONIC ACID
  3. HALAVEN [Suspect]
     Active Substance: ERIBULIN MESYLATE
     Indication: INVASIVE LOBULAR BREAST CARCINOMA
     Route: 041
     Dates: start: 20150622, end: 20150713

REACTIONS (3)
  - Neutropenia [Recovered/Resolved]
  - Malignant neoplasm progression [Fatal]
  - Leukopenia [Recovered/Resolved]

NARRATIVE: CASE EVENT DATE: 20150629
